FAERS Safety Report 6345623-8 (Version None)
Quarter: 2009Q3

REPORT INFORMATION
  Report Type: 
  Country: None (occurrence: None)
  Receive Date: 20090909
  Receipt Date: 20090901
  Transmission Date: 20100115
  Serious: Yes (Other)
  Sender: FDA-Public Use
  Company Number: US-ROCHE-654184

PATIENT
  Sex: Female

DRUGS (1)
  1. BONIVA [Suspect]
     Indication: OSTEOPENIA
     Route: 065
     Dates: start: 20090305, end: 20090305

REACTIONS (2)
  - DENTAL CARIES [None]
  - TONGUE NEOPLASM MALIGNANT STAGE UNSPECIFIED [None]
